FAERS Safety Report 4447780-7 (Version None)
Quarter: 2004Q3

REPORT INFORMATION
  Report Type: 
  Country: None (occurrence: None)
  Receive Date: 20040819
  Receipt Date: 20040225
  Transmission Date: 20050211
  Serious: Yes (Other)
  Sender: FDA-Public Use
  Company Number: 235570

PATIENT
  Age: 49 Year
  Sex: Female

DRUGS (1)
  1. NOVOLIN R [Suspect]
     Indication: ILL-DEFINED DISORDER
     Dosage: SINGLE, INTRAVENOUS
     Route: 042
     Dates: start: 20040201, end: 20040201

REACTIONS (2)
  - BLOOD GLUCOSE DECREASED [None]
  - MEDICATION ERROR [None]
